FAERS Safety Report 21863156 (Version 1)
Quarter: 2023Q1

REPORT INFORMATION
  Report Type: Spontaneous
  Country: US (occurrence: US)
  Receive Date: 20230115
  Receipt Date: 20230115
  Transmission Date: 20230417
  Serious: No
  Sender: FDA-Public Use
  Company Number: US-SA-SAC20230113000352

PATIENT
  Age: 70 Year
  Sex: Female

DRUGS (1)
  1. DUPIXENT [Suspect]
     Active Substance: DUPILUMAB
     Indication: Neurodermatitis
     Dosage: UNK UNK, 1X
     Route: 058
     Dates: start: 20230109, end: 20230109

REACTIONS (4)
  - Pain [Recovered/Resolved]
  - Pyrexia [Recovered/Resolved]
  - Inflammation [Recovered/Resolved]
  - Peripheral swelling [Recovered/Resolved]
